FAERS Safety Report 15027182 (Version 2)
Quarter: 2018Q2

REPORT INFORMATION
  Report Type: Report from Study
  Country: US (occurrence: US)
  Receive Date: 20180619
  Receipt Date: 20180627
  Transmission Date: 20180711
  Serious: Yes (Hospitalization)
  Sender: FDA-Public Use
  Company Number: US-ROCHE-2138886

PATIENT
  Sex: Male

DRUGS (1)
  1. CELLCEPT [Suspect]
     Active Substance: MYCOPHENOLATE MOFETIL\MYCOPHENOLATE MOFETIL HYDROCHLORIDE
     Indication: PRODUCT USED FOR UNKNOWN INDICATION
     Route: 065

REACTIONS (7)
  - Loss of consciousness [Unknown]
  - Hypotension [Unknown]
  - Dehydration [Unknown]
  - Dehydration [Not Recovered/Not Resolved]
  - Fungal infection [Not Recovered/Not Resolved]
  - Hypertension [Unknown]
  - Rash [Not Recovered/Not Resolved]
